FAERS Safety Report 6771717-9 (Version None)
Quarter: 2010Q2

REPORT INFORMATION
  Report Type: 
  Country: None (occurrence: None)
  Receive Date: 20100616
  Receipt Date: 20090817
  Transmission Date: 20101027
  Serious: No
  Sender: FDA-Public Use
  Company Number: US-ASTRAZENECA-2009SE08478

PATIENT
  Sex: Male

DRUGS (2)
  1. ATACAND [Suspect]
     Indication: HYPERTENSION
     Route: 048
     Dates: end: 20090101
  2. ATACAND [Suspect]
     Route: 048
     Dates: start: 20090801

REACTIONS (2)
  - DIZZINESS [None]
  - STREPTOCOCCAL INFECTION [None]
